FAERS Safety Report 18341172 (Version 1)
Quarter: 2020Q4

REPORT INFORMATION
  Report Type: Spontaneous
  Country: HR (occurrence: HR)
  Receive Date: 20201003
  Receipt Date: 20201003
  Transmission Date: 20210113
  Serious: Yes (Other)
  Sender: FDA-Public Use
  Company Number: HR-TEVA-2020-HR-1834263

PATIENT
  Age: 73 Year
  Sex: Female

DRUGS (3)
  1. NEBIVOLOL. [Suspect]
     Active Substance: NEBIVOLOL
     Dosage: 70 MG
     Route: 048
     Dates: start: 20200809, end: 20200809
  2. IRUZID (HYDROCHLOROTHIAZIDE/LISINOPRIL DIHYDRATE) [Suspect]
     Active Substance: HYDROCHLOROTHIAZIDE\LISINOPRIL
     Route: 048
     Dates: start: 20200809, end: 20200809
  3. XANAX XR [Suspect]
     Active Substance: ALPRAZOLAM
     Dosage: 18 MG
     Route: 048
     Dates: start: 20200809, end: 20200809

REACTIONS (4)
  - Suicide attempt [Unknown]
  - Skin injury [Unknown]
  - Intentional overdose [Unknown]
  - Somnolence [Unknown]

NARRATIVE: CASE EVENT DATE: 20200809
